FAERS Safety Report 11976045 (Version 5)
Quarter: 2016Q3

REPORT INFORMATION
  Report Type: Spontaneous
  Country: US (occurrence: US)
  Receive Date: 20160129
  Receipt Date: 20160729
  Transmission Date: 20161109
  Serious: Yes (Other)
  Sender: FDA-Public Use
  Company Number: US-BEH-2016057966

PATIENT
  Sex: Female

DRUGS (1)
  1. PRIVIGEN [Suspect]
     Active Substance: HUMAN IMMUNOGLOBULIN G
     Indication: PRODUCT USED FOR UNKNOWN INDICATION

REACTIONS (11)
  - Cervical vertebral fracture [Unknown]
  - Ill-defined disorder [Unknown]
  - Meniscus injury [Unknown]
  - Neck surgery [Unknown]
  - Road traffic accident [Unknown]
  - Post-traumatic stress disorder [Unknown]
  - Surgery [Unknown]
  - Post-traumatic headache [Unknown]
  - Transient ischaemic attack [Unknown]
  - Impaired gastric emptying [Unknown]
  - Memory impairment [Unknown]

NARRATIVE: CASE EVENT DATE: 20140731
